FAERS Safety Report 18948205 (Version 2)
Quarter: 2021Q2

REPORT INFORMATION
  Report Type: Spontaneous
  Country: RO (occurrence: RO)
  Receive Date: 20210226
  Receipt Date: 20210408
  Transmission Date: 20210717
  Serious: Yes (Life-Threatening, Other)
  Sender: FDA-Public Use
  Company Number: RO-BRACCO-2021RO00664

PATIENT
  Age: 43 Year
  Sex: Female

DRUGS (4)
  1. SONOVUE [Suspect]
     Active Substance: SULFUR HEXAFLUORIDE
     Indication: ULTRASOUND LIVER
     Dosage: 1.6 ML, SINGLE
     Route: 042
     Dates: start: 20210218, end: 20210218
  2. SALINE [SODIUM CHLORIDE] [Concomitant]
     Active Substance: SODIUM CHLORIDE
     Dosage: UNK
     Dates: start: 20210218
  3. SONOVUE [Suspect]
     Active Substance: SULFUR HEXAFLUORIDE
     Indication: ULTRASOUND LIVER
     Dosage: 1.6 ML, SINGLE
     Route: 042
     Dates: start: 20210218, end: 20210218
  4. SONOVUE [Suspect]
     Active Substance: SULFUR HEXAFLUORIDE
     Indication: ULTRASOUND LIVER
     Dosage: 1.6 ML, SINGLE
     Route: 042
     Dates: start: 20210218, end: 20210218

REACTIONS (2)
  - Seizure [Recovered/Resolved]
  - Anaphylactic shock [Recovered/Resolved]

NARRATIVE: CASE EVENT DATE: 20210218
